FAERS Safety Report 4758539-5 (Version None)
Quarter: 2005Q3

REPORT INFORMATION
  Report Type: 
  Country: None (occurrence: None)
  Receive Date: 20050826
  Receipt Date: 20050817
  Transmission Date: 20060218
  Serious: Yes (Hospitalization, Other)
  Sender: FDA-Public Use
  Company Number: 2005-08-1054

PATIENT
  Age: 39 Year
  Sex: Female

DRUGS (2)
  1. INTRON A [Suspect]
     Indication: HEPATITIS B
     Dosage: 3 MIU QD SUBCUTANEOUS
     Route: 058
     Dates: start: 20041001, end: 20050301
  2. INTRON A [Suspect]
     Indication: HEPATITIS D
     Dosage: 3 MIU QD SUBCUTANEOUS
     Route: 058
     Dates: start: 20041001, end: 20050301

REACTIONS (22)
  - AGORAPHOBIA [None]
  - ALOPECIA [None]
  - ANXIETY [None]
  - APATHY [None]
  - AUTOIMMUNE THYROIDITIS [None]
  - DECREASED APPETITE [None]
  - DELUSION [None]
  - DELUSIONAL DISORDER, PERSECUTORY TYPE [None]
  - DEPRESSION [None]
  - DISTURBANCE IN ATTENTION [None]
  - FATIGUE [None]
  - FLAT AFFECT [None]
  - GENERAL PHYSICAL HEALTH DETERIORATION [None]
  - HYPOCHONDRIASIS [None]
  - LEUKOPENIA [None]
  - LIBIDO DECREASED [None]
  - MOOD DISORDER DUE TO A GENERAL MEDICAL CONDITION [None]
  - NAUSEA [None]
  - PSYCHOTIC DISORDER [None]
  - RESTLESSNESS [None]
  - SLEEP DISORDER [None]
  - WEIGHT DECREASED [None]
